FAERS Safety Report 9494663 (Version 1)
Quarter: 2013Q3

REPORT INFORMATION
  Report Type: Spontaneous
  Country: US (occurrence: None)
  Receive Date: 20130830
  Receipt Date: 20130830
  Transmission Date: 20140515
  Serious: Yes (Other)
  Sender: FDA-Public Use
  Company Number: None

PATIENT
  Age: 51 Year
  Sex: Female
  Weight: 73.03 kg

DRUGS (6)
  1. COGENTIN [Suspect]
     Route: 042
  2. NEXIUM [Concomitant]
  3. MULTI-VITAMIN + ZINC [Concomitant]
  4. TYLENOL [Concomitant]
  5. IBUPROPHIN [Concomitant]
  6. REGLAN [Suspect]

REACTIONS (15)
  - Blindness [None]
  - Tachycardia [None]
  - Paralysis [None]
  - Dyspnoea [None]
  - Crying [None]
  - Panic attack [None]
  - Altered state of consciousness [None]
  - Convulsion [None]
  - Motor dysfunction [None]
  - Chills [None]
  - Syncope [None]
  - Migraine [None]
  - Fatigue [None]
  - Tremor [None]
  - Memory impairment [None]
